FAERS Safety Report 8175473-1 (Version None)
Quarter: 2012Q1

REPORT INFORMATION
  Report Type: 
  Country: None (occurrence: None)
  Receive Date: 20120229
  Receipt Date: 20120222
  Transmission Date: 20120608
  Serious: Yes (Death, Other)
  Sender: FDA-Public Use
  Company Number: US-ABBOTT-12P-163-0907859-00

PATIENT
  Sex: Male
  Weight: 84 kg

DRUGS (7)
  1. ZOLPIDEM [Concomitant]
     Indication: PRODUCT USED FOR UNKNOWN INDICATION
  2. CYCLOBENZAPRINE [Interacting]
     Indication: PRODUCT USED FOR UNKNOWN INDICATION
  3. ACETAMINOPHEN [Interacting]
     Indication: PRODUCT USED FOR UNKNOWN INDICATION
  4. AMBIEN [Interacting]
     Indication: SLEEP DISORDER
     Dosage: FILM-COATED
     Route: 048
  5. ASMANEX TWISTHALER [Concomitant]
     Indication: PRODUCT USED FOR UNKNOWN INDICATION
  6. MORPHINE SULFATE [Interacting]
     Indication: PRODUCT USED FOR UNKNOWN INDICATION
  7. HYDROCODONE BITARTRATE [Suspect]
     Indication: PRODUCT USED FOR UNKNOWN INDICATION

REACTIONS (16)
  - TOXICITY TO VARIOUS AGENTS [None]
  - DRUG INTERACTION [None]
  - DEPRESSION [None]
  - DRUG DEPENDENCE [None]
  - ARRHYTHMIA [None]
  - HEPATIC CONGESTION [None]
  - PULMONARY OEDEMA [None]
  - SOMNAMBULISM [None]
  - SPLEEN CONGESTION [None]
  - ACCIDENTAL EXPOSURE [None]
  - RESPIRATORY DEPRESSION [None]
  - UNEVALUABLE EVENT [None]
  - SUICIDAL IDEATION [None]
  - PULMONARY CONGESTION [None]
  - ANXIETY [None]
  - PLEURAL EFFUSION [None]
